FAERS Safety Report 12147799 (Version 3)
Quarter: 2016Q2

REPORT INFORMATION
  Report Type: Spontaneous
  Country: US (occurrence: US)
  Receive Date: 20160304
  Receipt Date: 20160523
  Transmission Date: 20160815
  Serious: Yes (Other)
  Sender: FDA-Public Use
  Company Number: US-BAYER-2016-039509

PATIENT
  Age: 33 Year
  Sex: Female
  Weight: 93.42 kg

DRUGS (2)
  1. MIRENA [Suspect]
     Active Substance: LEVONORGESTREL
     Indication: CONTRACEPTION
     Dosage: 20 MCG/24HR, CONT
     Route: 015
     Dates: start: 20160216, end: 20160217
  2. MIRENA [Suspect]
     Active Substance: LEVONORGESTREL
     Indication: CONTRACEPTION
     Dosage: 20 MCG/24HR, CONT
     Route: 015
     Dates: start: 20160224, end: 20160224

REACTIONS (5)
  - Complication of device insertion [Recovered/Resolved]
  - Complication of device insertion [None]
  - Uterine perforation [Recovered/Resolved]
  - Device difficult to use [None]
  - Embedded device [None]

NARRATIVE: CASE EVENT DATE: 20160216
